FAERS Safety Report 10085410 (Version 1)
Quarter: 2014Q2

REPORT INFORMATION
  Report Type: Spontaneous
  Country: US (occurrence: US)
  Receive Date: 20140418
  Receipt Date: 20140418
  Transmission Date: 20141212
  Serious: No
  Sender: FDA-Public Use
  Company Number: US-009507513-1403USA011851

PATIENT
  Age: 29 Year
  Sex: Male

DRUGS (1)
  1. PROPECIA [Suspect]
     Dosage: 1 MG. ONCE PER DAY
     Route: 048
     Dates: start: 2008

REACTIONS (1)
  - Haematospermia [Not Recovered/Not Resolved]
